FAERS Safety Report 11030309 (Version 1)
Quarter: 2015Q2

REPORT INFORMATION
  Report Type: Report from Study
  Country: IT (occurrence: IT)
  Receive Date: 20150415
  Receipt Date: 20150415
  Transmission Date: 20150821
  Serious: Yes (Life-Threatening, Hospitalization, Other)
  Sender: FDA-Public Use
  Company Number: IT-ABBVIE-14P-083-1296698-00

PATIENT
  Sex: Female
  Weight: 55 kg

DRUGS (1)
  1. DUODOPA [Suspect]
     Active Substance: CARBIDOPA\LEVODOPA
     Indication: PARKINSON^S DISEASE
     Dosage: 3.70 ML/H
     Route: 050

REACTIONS (3)
  - Uterine perforation [Recovering/Resolving]
  - Peritonitis [Recovered/Resolved]
  - Hysteroscopy [Recovered/Resolved]

NARRATIVE: CASE EVENT DATE: 20140528
